FAERS Safety Report 21470312 (Version 1)
Quarter: 2022Q4

REPORT INFORMATION
  Report Type: Spontaneous
  Country: FR (occurrence: FR)
  Receive Date: 20221018
  Receipt Date: 20221018
  Transmission Date: 20230112
  Serious: Yes (Other)
  Sender: FDA-Public Use
  Company Number: FR-SUN PHARMACEUTICAL INDUSTRIES LTD-2022R1-359326

PATIENT
  Age: 42 Year
  Sex: Female

DRUGS (2)
  1. CLOBETASOL [Suspect]
     Active Substance: CLOBETASOL
     Indication: Herpes gestationis
     Dosage: UNK 0.05% AT 30 G/DAY
     Route: 065
  2. PREDNISONE [Suspect]
     Active Substance: PREDNISONE
     Indication: Herpes gestationis
     Dosage: 1 MILLIGRAM/KILOGRAM
     Route: 065

REACTIONS (4)
  - Drug ineffective [Unknown]
  - Foetal distress syndrome [Unknown]
  - Foetal death [Unknown]
  - Exposure during pregnancy [Unknown]
